FAERS Safety Report 8823119 (Version 1)
Quarter: 2012Q4

REPORT INFORMATION
  Report Type: 
  Country: PL (occurrence: PL)
  Receive Date: 20121003
  Receipt Date: 20121003
  Transmission Date: 20130627
  Serious: Yes (Hospitalization)
  Sender: FDA-Public Use
  Company Number: PL-SANOFI-AVENTIS-2012SA070001

PATIENT
  Age: 45 Year
  Sex: Male
  Weight: 80 kg

DRUGS (8)
  1. TELFAST [Suspect]
     Indication: NEUROPATHIC PAIN
     Route: 048
     Dates: start: 2011, end: 20120618
  2. METHADONE HYDROCHLORIDE [Suspect]
     Indication: NEUROPATHIC PAIN
     Route: 048
     Dates: start: 20120610, end: 20120618
  3. AMITRIPTYLINE [Suspect]
     Indication: NEUROPATHIC PAIN
     Route: 048
     Dates: start: 20120610, end: 20120618
  4. DEPAKINE [Concomitant]
  5. GABAPENTIN [Concomitant]
  6. PRESTARIUM [Concomitant]
  7. INDAPEN [Concomitant]
  8. LIDOCAINE [Concomitant]

REACTIONS (2)
  - Ventricular arrhythmia [Recovered/Resolved]
  - Electrocardiogram QT prolonged [Recovered/Resolved]
